FAERS Safety Report 17622548 (Version 3)
Quarter: 2021Q1

REPORT INFORMATION
  Report Type: Spontaneous
  Country: US (occurrence: US)
  Receive Date: 20200403
  Receipt Date: 20210111
  Transmission Date: 20210419
  Serious: Yes (Other)
  Sender: FDA-Public Use
  Company Number: US-PFIZER INC-2020139894

PATIENT
  Age: 48 Year
  Sex: Female

DRUGS (16)
  1. PRILOSEC OTC [Suspect]
     Active Substance: OMEPRAZOLE MAGNESIUM
     Indication: GASTROOESOPHAGEAL REFLUX DISEASE
     Dosage: UNK
     Dates: start: 201002, end: 201912
  2. PREVACID [Suspect]
     Active Substance: LANSOPRAZOLE
     Indication: GASTROOESOPHAGEAL REFLUX DISEASE
     Dosage: UNK
     Dates: start: 2006, end: 2018
  3. METOPROLOL. [Concomitant]
     Active Substance: METOPROLOL
     Indication: BLOOD PRESSURE ABNORMAL
     Dosage: UNK
     Dates: start: 2017, end: 2019
  4. ASPIRIN. [Concomitant]
     Active Substance: ASPIRIN
     Indication: ANALGESIC THERAPY
     Dosage: UNK
     Dates: start: 2020
  5. FAMOTIDINE. [Concomitant]
     Active Substance: FAMOTIDINE
     Dosage: UNK
     Dates: start: 2018
  6. PRILOSEC OTC [Suspect]
     Active Substance: OMEPRAZOLE MAGNESIUM
     Dosage: 20 MG
     Dates: start: 2006, end: 2018
  7. FUROSEMIDE. [Concomitant]
     Active Substance: FUROSEMIDE
     Indication: NEPHROPATHY
  8. IBUPROFEN. [Concomitant]
     Active Substance: IBUPROFEN
     Indication: ANALGESIC THERAPY
     Dosage: UNK
     Dates: start: 2012
  9. VITAMIN D [Concomitant]
     Active Substance: VITAMIN D NOS
     Indication: SUPPLEMENTATION THERAPY
     Dosage: UNK
     Dates: start: 2010
  10. PROTONIX [Suspect]
     Active Substance: PANTOPRAZOLE SODIUM
     Dosage: 40 MG
     Dates: start: 2006, end: 2018
  11. OMEPRAZOLE. [Suspect]
     Active Substance: OMEPRAZOLE
     Indication: GASTROOESOPHAGEAL REFLUX DISEASE
     Dosage: 20 MG
     Dates: start: 2018, end: 2019
  12. FUROSEMIDE. [Concomitant]
     Active Substance: FUROSEMIDE
     Indication: DIURETIC THERAPY
     Dosage: UNK
     Dates: start: 2015, end: 2019
  13. ACETAMINOPHEN. [Concomitant]
     Active Substance: ACETAMINOPHEN
     Indication: ANALGESIC THERAPY
     Dosage: UNK
     Dates: start: 2011, end: 2017
  14. VITAMIN D [Concomitant]
     Active Substance: VITAMIN D NOS
     Dosage: UNK
     Dates: start: 2018, end: 2019
  15. PROTONIX [Suspect]
     Active Substance: PANTOPRAZOLE SODIUM
     Indication: GASTROOESOPHAGEAL REFLUX DISEASE
     Dosage: UNK
     Dates: start: 201002, end: 201912
  16. PREDNISONE. [Concomitant]
     Active Substance: PREDNISONE
     Indication: STEROID THERAPY
     Dosage: UNK
     Dates: start: 2010, end: 2020

REACTIONS (2)
  - Chronic kidney disease [Not Recovered/Not Resolved]
  - Acute kidney injury [Not Recovered/Not Resolved]
